FAERS Safety Report 5282470-2 (Version None)
Quarter: 2007Q1

REPORT INFORMATION
  Report Type: 
  Country: None (occurrence: None)
  Receive Date: 20070326
  Receipt Date: 20070319
  Transmission Date: 20070707
  Serious: Yes (Other)
  Sender: FDA-Public Use
  Company Number: 233615

PATIENT
  Age: 65 Year
  Sex: Male

DRUGS (1)
  1. LUCENTIS [Suspect]
     Indication: MACULAR DEGENERATION
     Dosage: 0.5 MG, 1/MONTH, INTRAVENOUS
     Route: 042
     Dates: start: 20061020

REACTIONS (12)
  - BONE PAIN [None]
  - CHILLS [None]
  - DYSARTHRIA [None]
  - EAR DISCOMFORT [None]
  - HEADACHE [None]
  - HYPOAESTHESIA [None]
  - MUSCLE SPASMS [None]
  - MUSCULOSKELETAL PAIN [None]
  - PHOTOPHOBIA [None]
  - PHOTOPSIA [None]
  - THROAT TIGHTNESS [None]
  - URTICARIA [None]
